FAERS Safety Report 21378672 (Version 2)
Quarter: 2022Q3

REPORT INFORMATION
  Report Type: Report from Study
  Country: MX (occurrence: MX)
  Receive Date: 20220927
  Receipt Date: 20220929
  Transmission Date: 20221027
  Serious: Yes (Death, Other)
  Sender: FDA-Public Use
  Company Number: MX-NOVARTISPH-NVSC2022MX217648

PATIENT
  Sex: Male
  Weight: 85 kg

DRUGS (2)
  1. EXELON [Suspect]
     Active Substance: RIVASTIGMINE TARTRATE
     Indication: Cerebrovascular accident
     Dosage: 1 DOSAGE FORM, QD (5 YEARS AGO)
     Route: 062
     Dates: start: 2017, end: 2020
  2. EXELON [Suspect]
     Active Substance: RIVASTIGMINE TARTRATE
     Indication: Memory impairment
     Dosage: 1 DOSAGE FORM, QD  (PATCH 15 (CM2) (2 YEARS AGO) (27 MG))
     Route: 062
     Dates: start: 2020

REACTIONS (4)
  - Dehydration [Fatal]
  - Renal failure [Fatal]
  - Cerebrovascular accident [Unknown]
  - Off label use [Unknown]

NARRATIVE: CASE EVENT DATE: 20200101
